FAERS Safety Report 6768644-X (Version None)
Quarter: 2010Q2

REPORT INFORMATION
  Report Type: 
  Country: None (occurrence: None)
  Receive Date: 20100614
  Receipt Date: 20100608
  Transmission Date: 20101027
  Serious: Yes (Other)
  Sender: FDA-Public Use
  Company Number: US-SANOFI-AVENTIS-2010SA025821

PATIENT
  Age: 67 Year
  Sex: Female
  Weight: 53 kg

DRUGS (6)
  1. PLAVIX [Suspect]
     Indication: CAROTID ARTERY STENT INSERTION
     Route: 048
     Dates: start: 20090417
  2. LODINE [Concomitant]
  3. NEURONTIN [Concomitant]
  4. LISINOPRIL [Concomitant]
     Indication: BLOOD PRESSURE
  5. LIPITOR [Concomitant]
  6. ASPIRIN [Concomitant]
     Indication: STENT PLACEMENT

REACTIONS (3)
  - CAROTID ARTERY OCCLUSION [None]
  - FOOT OPERATION [None]
  - OFF LABEL USE [None]
